FAERS Safety Report 6550421-6 (Version None)
Quarter: 2010Q1

REPORT INFORMATION
  Report Type: 
  Country: None (occurrence: None)
  Receive Date: 20100121
  Receipt Date: 20100112
  Transmission Date: 20100710
  Serious: Yes (Death)
  Sender: FDA-Public Use
  Company Number: KV201000013

PATIENT

DRUGS (4)
  1. METOPROLOL SUCCINATE (METOPROLOL SUCCINATE) SLOW RELEASE TABLET [Suspect]
     Indication: DRUG USE FOR UNKNOWN INDICATION
  2. PLAVIX [Suspect]
  3. VALIUM [Suspect]
  4. SOMA [Suspect]

REACTIONS (5)
  - CARDIOVASCULAR DISORDER [None]
  - COMPLETED SUICIDE [None]
  - HAEMODYNAMIC INSTABILITY [None]
  - HAEMORRHAGE [None]
  - MULTIPLE DRUG OVERDOSE INTENTIONAL [None]
